FAERS Safety Report 5454479-7 (Version None)
Quarter: 2007Q3

REPORT INFORMATION
  Report Type: 
  Country: None (occurrence: None)
  Receive Date: 20070917
  Receipt Date: 20070330
  Transmission Date: 20080115
  Serious: Yes (Hospitalization)
  Sender: FDA-Public Use
  Company Number: US-ASTRAZENECA-2006UW11459

PATIENT
  Age: 20056 Day
  Sex: Female
  Weight: 73.6 kg

DRUGS (5)
  1. SEROQUEL [Suspect]
     Indication: SCHIZOPHRENIA
     Dosage: 25 MG, 75 MG
     Route: 048
     Dates: start: 20010702, end: 20010924
  2. SEROQUEL [Suspect]
     Indication: DEPRESSION
     Dosage: 25 MG, 75 MG
     Route: 048
     Dates: start: 20010702, end: 20010924
  3. ZYPREXA [Suspect]
  4. RISPERDAL [Concomitant]
     Dosage: 2 MG, 2X AT BEDTIME
     Dates: start: 20010730
  5. ZYPREXA [Concomitant]

REACTIONS (3)
  - DIABETIC KETOACIDOSIS [None]
  - PANCREATITIS [None]
  - TYPE 2 DIABETES MELLITUS [None]
